FAERS Safety Report 11724577 (Version 1)
Quarter: 2015Q4

REPORT INFORMATION
  Report Type: Spontaneous
  Country: US (occurrence: US)
  Receive Date: 20151111
  Receipt Date: 20151111
  Transmission Date: 20160304
  Serious: No
  Sender: FDA-Public Use
  Company Number: US-UCBSA-2014012364

PATIENT
  Age: 19 Year

DRUGS (1)
  1. VIMPAT [Suspect]
     Active Substance: LACOSAMIDE

REACTIONS (4)
  - Tongue coated [Unknown]
  - Diplopia [Unknown]
  - Balance disorder [Unknown]
  - Dysarthria [Unknown]
